FAERS Safety Report 13565370 (Version 1)
Quarter: 2017Q2

REPORT INFORMATION
  Report Type: Spontaneous
  Country: US (occurrence: US)
  Receive Date: 20170519
  Receipt Date: 20170519
  Transmission Date: 20170830
  Serious: No
  Sender: FDA-Public Use
  Company Number: US-TAIHO ONCOLOGY INC-EU-2017-00796

PATIENT
  Age: 38 Year
  Sex: Female

DRUGS (3)
  1. CURCUMIN [Concomitant]
     Active Substance: CURCUMIN
     Dosage: NI
  2. LONSURF [Suspect]
     Active Substance: TIPIRACIL HYDROCHLORIDE\TRIFLURIDINE
     Indication: COLON CANCER
     Dosage: CURRENT CYCLE 1
     Route: 048
     Dates: start: 20170505
  3. FOENICULUM VULGARE [Concomitant]
     Active Substance: FENNEL SEED
     Dosage: OIL

REACTIONS (2)
  - Vomiting [Recovered/Resolved]
  - Nausea [Recovered/Resolved]

NARRATIVE: CASE EVENT DATE: 20170509
